FAERS Safety Report 17538082 (Version 1)
Quarter: 2020Q1

REPORT INFORMATION
  Report Type: Spontaneous
  Country: US (occurrence: US)
  Receive Date: 20200305
  Receipt Date: 20200305
  Transmission Date: 20200409
  Serious: Yes (Death)
  Sender: FDA-Public Use
  Company Number: None

PATIENT
  Age: 60 Year
  Sex: Female

DRUGS (1)
  1. IBRANCE [Suspect]
     Active Substance: PALBOCICLIB
     Dosage: 21 CAPSULES 1 CAP EVERY DAY X 21 DAYS OF EVERY 28 DAY CYCLE BY MONTH
     Route: 048
     Dates: start: 20181115

REACTIONS (1)
  - Disease progression [None]

NARRATIVE: CASE EVENT DATE: 20200227
